FAERS Safety Report 7459437-9 (Version None)
Quarter: 2011Q2

REPORT INFORMATION
  Report Type: 
  Country: None (occurrence: None)
  Receive Date: 20110505
  Receipt Date: 20110502
  Transmission Date: 20111010
  Serious: Yes (Hospitalization)
  Sender: FDA-Public Use
  Company Number: DE-AMGEN-DEUSP2011017589

PATIENT
  Sex: Male

DRUGS (2)
  1. ACE INHIBITOR NOS [Concomitant]
  2. ARANESP [Suspect]
     Indication: RENAL FAILURE CHRONIC
     Dosage: UNK A?G, UNK
     Dates: start: 20100101

REACTIONS (2)
  - HYPERTENSIVE CRISIS [None]
  - THERAPEUTIC RESPONSE DECREASED [None]
